FAERS Safety Report 6055887-6 (Version None)
Quarter: 2009Q1

REPORT INFORMATION
  Report Type: 
  Country: None (occurrence: None)
  Receive Date: 20090126
  Receipt Date: 20090112
  Transmission Date: 20090719
  Serious: Yes (Death, Hospitalization)
  Sender: FDA-Public Use
  Company Number: A-CH2009-23392

PATIENT
  Age: 55 Year
  Sex: Female

DRUGS (24)
  1. BOSENTAN            TABLET 62.5 MG EU [Suspect]
     Indication: IDIOPATHIC PULMONARY FIBROSIS
     Dosage: ORAL
     Route: 048
     Dates: end: 20081230
  2. ATROVENT [Concomitant]
  3. BUMETANIDE [Concomitant]
  4. AZATHIOPRINE [Concomitant]
  5. NEOCLARITYN (DESLORATADINE) [Concomitant]
  6. CARBOCISTEINE (CARBOCISTEINE) [Concomitant]
  7. CALCI CHEW D3 (CALCIUM, COLECALCIFEROL) [Concomitant]
  8. RAMIPRIL [Concomitant]
  9. SALBUTAMOL (SALBUTAMOL) [Concomitant]
  10. ALENDRONIC ACID (ALENDRONIC ACID) [Concomitant]
  11. PREDNISOLONE [Concomitant]
  12. ENOXAPARIN SODIUM [Concomitant]
  13. MEROPENEM (MEROPENEM) [Concomitant]
  14. CODEINE PHOSPHATE AND ACETAMINOPHEN [Concomitant]
  15. LACTULOSE [Concomitant]
  16. ACETYLCYSTEINE [Concomitant]
  17. MOMETASONE FUROATE [Concomitant]
  18. SERETIDE        (FLUTICASONE PROPIONATE, SALMETEROL XINAFOATE) [Concomitant]
  19. ZINC (ZINC) [Concomitant]
  20. MAGNESIUM (MAGNESIUM) [Concomitant]
  21. ACETAMINOPHEN [Concomitant]
  22. ASCORBIC ACID [Concomitant]
  23. OMEPRAZOLE [Concomitant]
  24. VITAMIN B12 [Concomitant]

REACTIONS (7)
  - DISEASE PROGRESSION [None]
  - GENERAL PHYSICAL HEALTH DETERIORATION [None]
  - IDIOPATHIC PULMONARY FIBROSIS [None]
  - OEDEMA PERIPHERAL [None]
  - OFF LABEL USE [None]
  - RESPIRATORY FAILURE [None]
  - RIGHT VENTRICULAR FAILURE [None]
